FAERS Safety Report 7783909-0 (Version None)
Quarter: 2011Q3

REPORT INFORMATION
  Report Type: 
  Country: None (occurrence: None)
  Receive Date: 20110928
  Receipt Date: 20110920
  Transmission Date: 20111222
  Serious: Yes (Other)
  Sender: FDA-Public Use
  Company Number: GB-GLAXOSMITHKLINE-B0749395A

PATIENT
  Age: 50 Year
  Sex: Female

DRUGS (3)
  1. SERETIDE [Suspect]
     Indication: PRODUCT USED FOR UNKNOWN INDICATION
     Route: 065
  2. METFORMIN HCL [Concomitant]
  3. ALENDRONATE SODIUM [Concomitant]

REACTIONS (1)
  - ASTHMA [None]
